FAERS Safety Report 25956173 (Version 1)
Quarter: 2025Q4

REPORT INFORMATION
  Report Type: Spontaneous
  Country: US (occurrence: None)
  Receive Date: 20251023
  Receipt Date: 20251023
  Transmission Date: 20260117
  Serious: Yes (Hospitalization)
  Sender: FDA-CTU
  Company Number: None

PATIENT
  Age: 54 Year
  Sex: Male

DRUGS (11)
  1. XOLAIR PFS [Suspect]
     Active Substance: OMALIZUMAB
     Dosage: GIVE 300 MG UNDER THE SKIN (SUBCUTANEOUS INJECTION) EVERY 2 WEEKS.?
     Route: 058
  2. ALBUTEROL AER HFA [Concomitant]
  3. EPINEPHRINE INJ 0.3MG [Concomitant]
  4. GLIMEPIRIDE TAB 4MG [Concomitant]
  5. ALBUTEROL\IPRATROPIUM BROMIDE [Concomitant]
     Active Substance: ALBUTEROL\IPRATROPIUM BROMIDE
  6. JARDIANCE TAB 25MG [Concomitant]
  7. METFORMIN TAB 500MG ER [Concomitant]
  8. OXYCOD/APAP TAB 5-325MG [Concomitant]
  9. PIOGLITAZONE TAB 45MG [Concomitant]
  10. PREDNISONE [Concomitant]
     Active Substance: PREDNISONE
  11. ROSUVASTATIN [Concomitant]
     Active Substance: ROSUVASTATIN

REACTIONS (3)
  - Drug ineffective [None]
  - Quality of life decreased [None]
  - Condition aggravated [None]

NARRATIVE: CASE EVENT DATE: 20251013
